FAERS Safety Report 12366432 (Version 10)
Quarter: 2017Q1

REPORT INFORMATION
  Report Type: Report from Study
  Country: DK (occurrence: DK)
  Receive Date: 20160513
  Receipt Date: 20170120
  Transmission Date: 20170428
  Serious: Yes (Death, Hospitalization)
  Sender: FDA-Public Use
  Company Number: DK-ROCHE-1755407

PATIENT
  Age: 70 Year
  Sex: Male
  Weight: 66.3 kg

DRUGS (55)
  1. ALLOPURINOL. [Concomitant]
     Active Substance: ALLOPURINOL
     Route: 048
     Dates: start: 20160413
  2. ESCITALOPRAM [Concomitant]
     Active Substance: ESCITALOPRAM OXALATE
     Indication: DEPRESSION
     Route: 048
     Dates: start: 20160330, end: 20160503
  3. ESCITALOPRAM [Concomitant]
     Active Substance: ESCITALOPRAM OXALATE
     Route: 048
     Dates: start: 20160504
  4. FUROSEMID [Concomitant]
     Active Substance: FUROSEMIDE
     Route: 042
     Dates: start: 20160424, end: 20160428
  5. KALIUMCHLORID [Concomitant]
     Indication: HYPOKALAEMIA
     Route: 048
     Dates: start: 20160410, end: 20160410
  6. CLEMASTIN [Concomitant]
     Active Substance: CLEMASTINE
     Route: 048
     Dates: start: 20160415, end: 20160415
  7. CLEMASTIN [Concomitant]
     Active Substance: CLEMASTINE
     Route: 048
     Dates: start: 20160421, end: 20160421
  8. METHYLPREDNISOLON [Concomitant]
     Active Substance: METHYLPREDNISOLONE
     Route: 042
     Dates: start: 20160415, end: 20160415
  9. OMEGA 3 [Concomitant]
     Active Substance: OMEGA-3 FATTY ACIDS
     Indication: VITAMIN SUPPLEMENTATION
     Route: 048
     Dates: start: 20160317
  10. ERYTHROCYTE TRANSFUSIONS [Concomitant]
     Route: 042
     Dates: start: 20160513, end: 20160513
  11. ROSUVASTATIN. [Concomitant]
     Active Substance: ROSUVASTATIN
     Indication: HYPERCHOLESTEROLAEMIA
     Route: 048
     Dates: start: 20160409
  12. IBUPROFEN. [Concomitant]
     Active Substance: IBUPROFEN
     Indication: PAIN IN EXTREMITY
     Route: 048
  13. NATRIUMCHLORID [Concomitant]
     Route: 042
     Dates: start: 20160413, end: 20160413
  14. NATRIUMCHLORID [Concomitant]
     Route: 042
     Dates: start: 20160504, end: 20160504
  15. NATRIUMCHLORID [Concomitant]
     Dosage: 1 OTHER
     Route: 048
     Dates: start: 20160524
  16. FUROSEMID [Concomitant]
     Active Substance: FUROSEMIDE
     Route: 042
     Dates: start: 20160421, end: 20160423
  17. METHYLPREDNISOLON [Concomitant]
     Active Substance: METHYLPREDNISOLONE
     Indication: PROPHYLAXIS
     Route: 042
     Dates: start: 20160414, end: 20160414
  18. METHYLPREDNISOLON [Concomitant]
     Active Substance: METHYLPREDNISOLONE
     Route: 042
     Dates: start: 20160421, end: 20160421
  19. METHYLPREDNISOLON [Concomitant]
     Active Substance: METHYLPREDNISOLONE
     Route: 042
     Dates: start: 20160511, end: 20160511
  20. OBINUTUZUMAB [Suspect]
     Active Substance: OBINUTUZUMAB
     Indication: CHRONIC LYMPHOCYTIC LEUKAEMIA
     Dosage: MOST RECENT DOSE AT 1000 MG WAS TAKEN ON ON 28/APR/2016 AT 12:00 HOURS PRIOR TO FIRST EPISODE OF INF
     Route: 042
     Dates: start: 20160414
  21. NATRIUMCHLORID [Concomitant]
     Route: 042
     Dates: start: 20160414, end: 20160414
  22. PARACETAMOL [Concomitant]
     Active Substance: ACETAMINOPHEN
     Route: 048
     Dates: start: 20160421, end: 20160421
  23. PARACETAMOL [Concomitant]
     Active Substance: ACETAMINOPHEN
     Route: 048
     Dates: start: 20160428, end: 20160428
  24. MICONAZOL [Concomitant]
     Active Substance: MICONAZOLE NITRATE
     Indication: ANAL FUNGAL INFECTION
     Route: 065
     Dates: start: 20160504, end: 20160518
  25. ERYTHROCYTE TRANSFUSIONS [Concomitant]
     Route: 042
     Dates: start: 20160418, end: 20160418
  26. NATRIUMHYDROGENCARBONAT [Concomitant]
     Active Substance: SODIUM BICARBONATE
     Dosage: 1 OTHER
     Route: 048
     Dates: start: 20160524
  27. GDC-0199 (BCL-2 SELECTIVE INHIBITOR) [Suspect]
     Active Substance: VENETOCLAX
     Indication: CHRONIC LYMPHOCYTIC LEUKAEMIA
     Dosage: MOST RECENT DOSE TAKEN ON 04/MAY/2016 11:30 HOURS PRIOR TO FIRST EPISODE OF INFECTION UNKNOWN FOCUS
     Route: 048
     Dates: start: 20160504
  28. DIPYRIDAMOL [Concomitant]
     Indication: CEREBROVASCULAR ACCIDENT
     Route: 048
  29. PARACETAMOL [Concomitant]
     Active Substance: ACETAMINOPHEN
     Indication: PROPHYLAXIS
     Route: 048
     Dates: start: 20160414, end: 20160414
  30. PARACETAMOL [Concomitant]
     Active Substance: ACETAMINOPHEN
     Route: 048
     Dates: start: 20160415, end: 20160415
  31. CLEMASTIN [Concomitant]
     Active Substance: CLEMASTINE
     Indication: PROPHYLAXIS
     Route: 048
     Dates: start: 20160414, end: 20160414
  32. NATRIUMCHLORID [Concomitant]
     Indication: HYPONATRAEMIA
     Route: 042
     Dates: start: 20160408, end: 20160408
  33. FUROSEMID [Concomitant]
     Active Substance: FUROSEMIDE
     Indication: OEDEMA PERIPHERAL
     Route: 042
     Dates: start: 20160408, end: 20160414
  34. KALIUMCHLORID [Concomitant]
     Dosage: 1 OTHER
     Route: 048
     Dates: start: 20160524
  35. CLEMASTIN [Concomitant]
     Active Substance: CLEMASTINE
     Route: 048
     Dates: start: 20160428, end: 20160428
  36. METHYLPREDNISOLON [Concomitant]
     Active Substance: METHYLPREDNISOLONE
     Route: 042
     Dates: start: 20160428, end: 20160428
  37. BENDROFLUMETHIAZIDE/KALIUM CHLORID [Concomitant]
     Indication: OEDEMA PERIPHERAL
     Route: 048
     Dates: start: 20160421
  38. ERYTHROCYTE TRANSFUSIONS [Concomitant]
     Route: 042
     Dates: start: 20160414, end: 20160414
  39. MEROPENEM. [Concomitant]
     Active Substance: MEROPENEM
     Indication: EPSTEIN-BARR VIRUS INFECTION
     Route: 042
     Dates: start: 20160408, end: 20160411
  40. ALLOPURINOL. [Concomitant]
     Active Substance: ALLOPURINOL
     Route: 048
     Dates: start: 20160404, end: 20160409
  41. NATRIUMCHLORID [Concomitant]
     Route: 042
     Dates: start: 20160409, end: 20160409
  42. NATRIUMCHLORID [Concomitant]
     Route: 048
     Dates: start: 20160415, end: 20160415
  43. CLEMASTIN [Concomitant]
     Active Substance: CLEMASTINE
     Route: 048
     Dates: start: 20160511, end: 20160511
  44. PETHIDIN [Concomitant]
     Active Substance: MEPERIDINE
     Indication: INFUSION RELATED REACTION
     Route: 042
     Dates: start: 20160414, end: 20160414
  45. ERYTHROCYTE TRANSFUSIONS [Concomitant]
     Indication: HAEMOGLOBIN DECREASED
     Dosage: DOSE:1 UNIT
     Route: 042
     Dates: start: 20160410, end: 20160410
  46. NATRIUMHYDROGENCARBONAT [Concomitant]
     Active Substance: SODIUM BICARBONATE
     Indication: CONSTIPATION
     Dosage: 1 OTHER
     Route: 048
     Dates: start: 20160524
  47. MACROGOL 3350 [Concomitant]
     Active Substance: POLYETHYLENE GLYCOL 3350
     Indication: CONSTIPATION
     Route: 048
     Dates: start: 20160524
  48. TRANDOLAPRIL. [Concomitant]
     Active Substance: TRANDOLAPRIL
     Indication: HYPERTENSION
     Route: 048
     Dates: start: 20160408
  49. AMLODIPIN [Concomitant]
     Active Substance: AMLODIPINE BESYLATE
     Indication: HYPERTENSION
     Route: 048
     Dates: start: 20160408
  50. NYSTATIN. [Concomitant]
     Active Substance: NYSTATIN
     Indication: ORAL FUNGAL INFECTION
     Route: 048
     Dates: start: 20160504
  51. CEFUROXIM [Concomitant]
     Active Substance: CEFUROXIME
     Indication: EPSTEIN-BARR VIRUS INFECTION
     Route: 042
     Dates: start: 20160408, end: 20160408
  52. ACETYLSALICYLSYRE [Concomitant]
     Active Substance: ASPIRIN
     Indication: MYOCARDIAL INFARCTION
     Route: 048
  53. FUROSEMID [Concomitant]
     Active Substance: FUROSEMIDE
     Route: 042
     Dates: start: 20160416, end: 20160418
  54. ERYTHROCYTE TRANSFUSIONS [Concomitant]
     Dosage: DOSE:1 UNIT
     Route: 042
     Dates: start: 20160412, end: 20160412
  55. CEFTAZIDIM [Concomitant]
     Active Substance: CEFTAZIDIME
     Indication: EPSTEIN-BARR VIRUS INFECTION
     Route: 042
     Dates: start: 20160415, end: 20160418

REACTIONS (2)
  - Infection [Fatal]
  - Infection [Recovered/Resolved]

NARRATIVE: CASE EVENT DATE: 20160505
